FAERS Safety Report 5343868-7 (Version None)
Quarter: 2007Q2

REPORT INFORMATION
  Report Type: 
  Country: None (occurrence: None)
  Receive Date: 20070531
  Receipt Date: 20070531
  Transmission Date: 20071010
  Serious: Yes (Life-Threatening)
  Sender: FDA-Public Use
  Company Number: None

PATIENT
  Age: 47 Year
  Sex: Female
  Weight: 79.8 kg

DRUGS (2)
  1. HURRICAINE TOPICAL ANESTHETIC SP 20% BEUTLICH PHARMACEUTICALS [Suspect]
     Indication: ECHOCARDIOGRAM
     Dosage: MULTIPLE SPRAYS -UNKNOWN #-  ONCE OROPHARINGE
     Route: 049
     Dates: start: 20070513, end: 20070513
  2. PROPOFOL [Suspect]

REACTIONS (3)
  - CYANOSIS [None]
  - DRUG HYPERSENSITIVITY [None]
  - HYPOXIA [None]
